FAERS Safety Report 14878250 (Version 1)
Quarter: 2018Q2

REPORT INFORMATION
  Report Type: Spontaneous
  Country: FR (occurrence: FR)
  Receive Date: 20180510
  Receipt Date: 20180510
  Transmission Date: 20180711
  Serious: Yes (Other)
  Sender: FDA-Public Use
  Company Number: FR-MERCK KGAA-2047593

PATIENT
  Age: 66 Year
  Sex: Female

DRUGS (1)
  1. NOVOTHYROX [Suspect]
     Active Substance: LEVOTHYROXINE SODIUM
     Indication: PRODUCT USED FOR UNKNOWN INDICATION
     Dates: start: 201703

REACTIONS (25)
  - Aggression [None]
  - Arthralgia [None]
  - Loss of personal independence in daily activities [None]
  - Somatic symptom disorder [None]
  - Fatigue [None]
  - Mood swings [None]
  - Dizziness [None]
  - Agitation [None]
  - Abdominal pain [None]
  - Mental impairment [None]
  - Weight increased [None]
  - Alopecia [None]
  - Arrhythmia [None]
  - Asthenia [None]
  - Fall [None]
  - Impatience [None]
  - Insomnia [None]
  - Apathy [None]
  - Anxiety [None]
  - Gastrointestinal disorder [None]
  - Amnesia [None]
  - Disturbance in attention [None]
  - Balance disorder [None]
  - Lack of spontaneous speech [None]
  - Headache [None]

NARRATIVE: CASE EVENT DATE: 201704
